FAERS Safety Report 6015311-6 (Version None)
Quarter: 2008Q4

REPORT INFORMATION
  Report Type: 
  Country: None (occurrence: None)
  Receive Date: 20081218
  Receipt Date: 20081209
  Transmission Date: 20090506
  Serious: Yes (Disabling, Other)
  Sender: FDA-Public Use
  Company Number: SPV1-2008-02711

PATIENT
  Age: 91 Year
  Sex: Male
  Weight: 61.2 kg

DRUGS (8)
  1. FOSRENOL [Suspect]
     Indication: BLOOD PHOSPHORUS
     Dosage: 1000 MG, 2X/DAY, BID, ORAL
     Route: 048
     Dates: start: 20060101
  2. FOSRENOL [Suspect]
     Indication: BONE DISORDER
     Dosage: 1000 MG, 2X/DAY, BID, ORAL
     Route: 048
     Dates: start: 20060101
  3. CILOSTAZOL (CILSTAZOL) [Concomitant]
  4. METOPROLOL TARTRATE [Concomitant]
  5. PLAVIX [Concomitant]
  6. RESINOL (CALAMINE, RESORCINOL, ZINC OXIDE) [Concomitant]
  7. ACETAMINOPHEN [Concomitant]
  8. ZETIA [Concomitant]

REACTIONS (4)
  - BLINDNESS UNILATERAL [None]
  - CONDITION AGGRAVATED [None]
  - DIARRHOEA [None]
  - GLAUCOMA [None]
